FAERS Safety Report 18060462 (Version 1)
Quarter: 2020Q3

REPORT INFORMATION
  Report Type: Spontaneous
  Country: JP (occurrence: JP)
  Receive Date: 20200723
  Receipt Date: 20200723
  Transmission Date: 20201103
  Serious: Yes (Hospitalization, Other)
  Sender: FDA-Public Use
  Company Number: JP-TEVA-2020-JP-1805871

PATIENT
  Age: 83 Year
  Sex: Male

DRUGS (3)
  1. GEMCITABINE. [Suspect]
     Active Substance: GEMCITABINE
     Indication: BLADDER SQUAMOUS CELL CARCINOMA STAGE UNSPECIFIED
     Route: 065
  2. CISPLATIN. [Suspect]
     Active Substance: CISPLATIN
     Indication: BLADDER SQUAMOUS CELL CARCINOMA STAGE UNSPECIFIED
     Route: 065
  3. PEMBROLIZUMAB. [Suspect]
     Active Substance: PEMBROLIZUMAB
     Indication: BLADDER SQUAMOUS CELL CARCINOMA STAGE UNSPECIFIED
     Route: 065
     Dates: start: 2018

REACTIONS (3)
  - Immune-mediated thyroiditis [Unknown]
  - Myelosuppression [Unknown]
  - Bladder transitional cell carcinoma recurrent [Unknown]

NARRATIVE: CASE EVENT DATE: 2018
